FAERS Safety Report 5713931-7 (Version None)
Quarter: 2008Q2

REPORT INFORMATION
  Report Type: 
  Country: None (occurrence: None)
  Receive Date: 20080422
  Receipt Date: 20080422
  Transmission Date: 20081010
  Serious: Yes (Hospitalization)
  Sender: FDA-Public Use
  Company Number: None

PATIENT
  Age: 74 Year
  Sex: Male
  Weight: 70 kg

DRUGS (5)
  1. WARFARIN SODIUM [Suspect]
     Indication: ATRIAL FIBRILLATION
     Dosage: 5 MG DAILY PO PRIOR TO ADMISSION
     Route: 048
  2. WARFARIN SODIUM [Suspect]
     Indication: CARDIAC FAILURE CONGESTIVE
     Dosage: 5 MG DAILY PO PRIOR TO ADMISSION
     Route: 048
  3. WARFARIN SODIUM [Suspect]
     Indication: CEREBROVASCULAR ACCIDENT
     Dosage: 5 MG DAILY PO PRIOR TO ADMISSION
     Route: 048
  4. TRICOR [Suspect]
     Indication: BLOOD TRIGLYCERIDES INCREASED
     Dosage: 145 MG DAILY PO PRIOR TO ADMISSION
     Route: 048
  5. TRICOR [Suspect]
     Indication: HYPERLIPIDAEMIA
     Dosage: 145 MG DAILY PO PRIOR TO ADMISSION
     Route: 048

REACTIONS (2)
  - INTERNATIONAL NORMALISED RATIO INCREASED [None]
  - INTESTINAL HAEMORRHAGE [None]
